FAERS Safety Report 18439002 (Version 1)
Quarter: 2020Q4

REPORT INFORMATION
  Report Type: Spontaneous
  Country: US (occurrence: US)
  Receive Date: 20201028
  Receipt Date: 20201028
  Transmission Date: 20210114
  Serious: No
  Sender: FDA-Public Use
  Company Number: US-PARATEK PHARMACEUTICALS, INC.-2020PTK00232

PATIENT
  Age: 22 Year
  Sex: Female

DRUGS (5)
  1. NUZYRA [Suspect]
     Active Substance: OMADACYCLINE
     Indication: MYCOBACTERIUM ABSCESSUS INFECTION
     Dosage: 300 MG, 1X/DAY
     Route: 048
     Dates: start: 202008, end: 2020
  2. ELIQUIS [Concomitant]
     Active Substance: APIXABAN
  3. ^CLARITIN D TYPE OF ALLERGY PILL^ [Concomitant]
     Dosage: UNK, 1X/DAY
  4. UNSPECIFIED MULTIVITAMIN [Concomitant]
  5. UNSPECIFIED ANTIBIOTIC [Concomitant]
     Active Substance: UNSPECIFIED INGREDIENT
     Route: 048

REACTIONS (2)
  - Off label use [Recovered/Resolved]
  - Nausea [Recovered/Resolved]

NARRATIVE: CASE EVENT DATE: 202008
